FAERS Safety Report 25535159 (Version 1)
Quarter: 2025Q3

REPORT INFORMATION
  Report Type: Spontaneous
  Country: GB (occurrence: GB)
  Receive Date: 20250709
  Receipt Date: 20250709
  Transmission Date: 20251021
  Serious: Yes (Disabling, Other)
  Sender: B. BRAUN MEDICAL INC.
  Company Number: None

PATIENT
  Age: 43 Year
  Sex: Female
  Weight: 82 kg

DRUGS (2)
  1. METRONIDAZOLE [Suspect]
     Active Substance: METRONIDAZOLE
     Indication: Tooth abscess
     Dosage: 400MG 3 TIMES A DAY
  2. LOGYNON [Concomitant]
     Indication: Oral contraception

REACTIONS (4)
  - Brain fog [Not Recovered/Not Resolved]
  - Fatigue [Not Recovered/Not Resolved]
  - Apathy [Not Recovered/Not Resolved]
  - Dizziness [Recovering/Resolving]

NARRATIVE: CASE EVENT DATE: 20250628
